FAERS Safety Report 21184746 (Version 1)
Quarter: 2022Q3

REPORT INFORMATION
  Report Type: Spontaneous
  Country: US (occurrence: None)
  Receive Date: 20220806
  Receipt Date: 20220806
  Transmission Date: 20221026
  Serious: No
  Sender: FDA-Public Use
  Company Number: None

PATIENT
  Age: 7 Year
  Sex: Female

DRUGS (1)
  1. LEUKINE [Suspect]
     Active Substance: SARGRAMOSTIM
     Indication: Neoplasm malignant
     Dosage: FREQUENCY : DAILY;?
     Route: 058
     Dates: start: 202102

REACTIONS (1)
  - Intra-abdominal fluid collection [None]

NARRATIVE: CASE EVENT DATE: 20220627
